FAERS Safety Report 16950106 (Version 1)
Quarter: 2019Q4

REPORT INFORMATION
  Report Type: Spontaneous
  Country: US (occurrence: US)
  Receive Date: 20190830
  Receipt Date: 20190830
  Transmission Date: 20200122
  Serious: Yes (Hospitalization)
  Sender: FDA-Public Use
  Company Number: None

PATIENT
  Sex: Male
  Weight: 85.9 kg

DRUGS (20)
  1. VINCRISTINE SULFATE. [Suspect]
     Active Substance: VINCRISTINE SULFATE
     Dates: end: 20170220
  2. RANITIDINE. [Concomitant]
     Active Substance: RANITIDINE
  3. MARINOL [Concomitant]
     Active Substance: DRONABINOL
  4. ONCASPAR [Suspect]
     Active Substance: PEGASPARGASE
     Dates: end: 20170213
  5. BACTRIM [Concomitant]
     Active Substance: SULFAMETHOXAZOLE\TRIMETHOPRIM
  6. EMLA [Concomitant]
     Active Substance: LIDOCAINE\PRILOCAINE
  7. ONDANSETRON [Concomitant]
     Active Substance: ONDANSETRON
  8. DAUNORUBICIN [Suspect]
     Active Substance: DAUNORUBICIN
     Dates: end: 20170112
  9. LISINOPRIL. [Concomitant]
     Active Substance: LISINOPRIL
  10. MIRALAX [Concomitant]
     Active Substance: POLYETHYLENE GLYCOL 3350
  11. PROMETHAZINE [Concomitant]
     Active Substance: PROMETHAZINE HYDROCHLORIDE
  12. METHOTREXATE. [Suspect]
     Active Substance: METHOTREXATE
     Dates: end: 20170220
  13. DEXAMETHASONE. [Suspect]
     Active Substance: DEXAMETHASONE
     Dates: end: 20170119
  14. MERCAPTOPURINE. [Suspect]
     Active Substance: MERCAPTOPURINE
     Dates: end: 20170212
  15. HUMALOG [Concomitant]
     Active Substance: INSULIN LISPRO
  16. CYTARABINE. [Suspect]
     Active Substance: CYTARABINE
     Dates: end: 20170209
  17. SENNA [Concomitant]
     Active Substance: SENNA LEAF\SENNOSIDES\SENNOSIDES A AND B
  18. LANTUS [Concomitant]
     Active Substance: INSULIN GLARGINE
  19. LEUCOVORIN. [Concomitant]
     Active Substance: LEUCOVORIN
  20. MAGIC MOUTH (NYSTASTIN/MAALOX/BENADRYL 1:1:1) [Concomitant]

REACTIONS (20)
  - Hepatic function abnormal [None]
  - Ischaemic cerebral infarction [None]
  - Vomiting [None]
  - Hypoalbuminaemia [None]
  - Oedema [None]
  - Neutropenia [None]
  - Antithrombin III deficiency [None]
  - Hepatomegaly [None]
  - Deep vein thrombosis [None]
  - Blood albumin decreased [None]
  - Hepatic steatosis [None]
  - Pupils unequal [None]
  - Dehydration [None]
  - Protein total decreased [None]
  - Fall [None]
  - Lupus-like syndrome [None]
  - Coagulopathy [None]
  - Transaminases increased [None]
  - Weight increased [None]
  - Oedema peripheral [None]

NARRATIVE: CASE EVENT DATE: 20170126
